FAERS Safety Report 7139000-X (Version None)
Quarter: 2010Q4

REPORT INFORMATION
  Report Type: 
  Country: None (occurrence: None)
  Receive Date: 20101206
  Receipt Date: 20101130
  Transmission Date: 20110411
  Serious: Yes (Death, Life-Threatening, Hospitalization, Disabling)
  Sender: FDA-Public Use
  Company Number: A0892558A

PATIENT
  Age: 64 Year
  Sex: Female

DRUGS (2)
  1. HYCAMTIN [Suspect]
     Route: 042
     Dates: start: 20101005, end: 20101109
  2. NO CONCURRENT MEDICATION [Concomitant]

REACTIONS (1)
  - DEATH [None]
